FAERS Safety Report 13901131 (Version 1)
Quarter: 2017Q3

REPORT INFORMATION
  Report Type: Spontaneous
  Country: US (occurrence: None)
  Receive Date: 20170818
  Receipt Date: 20170818
  Transmission Date: 20171127
  Serious: Yes (Other)
  Sender: FDA-Public Use
  Company Number: None

PATIENT
  Age: 54 Year
  Sex: Female

DRUGS (1)
  1. IBRANCE [Suspect]
     Active Substance: PALBOCICLIB
     Indication: BREAST CANCER FEMALE
     Dosage: 125MG DAILY FOR 21 DAYS AND 7 DAYS OFF BY MOUTH
     Route: 048
     Dates: start: 20170113

REACTIONS (3)
  - Neuropathy peripheral [None]
  - Alopecia [None]
  - Dyspepsia [None]

NARRATIVE: CASE EVENT DATE: 20170113
